FAERS Safety Report 7912847-5 (Version None)
Quarter: 2011Q4

REPORT INFORMATION
  Report Type: 
  Country: None (occurrence: None)
  Receive Date: 20111114
  Receipt Date: 20111107
  Transmission Date: 20120403
  Serious: Yes (Other)
  Sender: FDA-Public Use
  Company Number: GB-GLAXOSMITHKLINE-B0760876A

PATIENT
  Age: 56 Year
  Sex: Female
  Weight: 61.5 kg

DRUGS (16)
  1. FLUTICASONE PROPIONATE/SALMETEROL [Suspect]
     Dates: start: 20111027
  2. BECLOMETHASONE DIPROPIONATE [Concomitant]
     Dates: start: 20110803, end: 20110922
  3. MONTELUKAST SODIUM [Concomitant]
     Dates: start: 20110803, end: 20110927
  4. INFLUENZA VIRUS VACCINE [Concomitant]
     Dates: start: 20111022, end: 20111023
  5. SALMETEROL [Concomitant]
     Dates: start: 20110803, end: 20110929
  6. SALMETEROL [Concomitant]
     Dates: start: 20111027
  7. SIMVASTATIN [Concomitant]
     Dates: start: 20110803
  8. FEXOFENADINE [Concomitant]
     Dates: start: 20110914, end: 20110924
  9. FLUTICASONE PROPIONATE [Concomitant]
     Dates: start: 20110927
  10. FEXOFENADINE [Concomitant]
     Dates: start: 20111011, end: 20111021
  11. TERBINAFINE HCL [Concomitant]
     Dates: start: 20111027
  12. VENTOLIN [Concomitant]
     Dates: start: 20110803
  13. LEVOTHYROXINE SODIUM [Concomitant]
     Dates: start: 20110803
  14. NICOTINE [Concomitant]
     Dates: start: 20110817, end: 20110831
  15. NASEPTIN [Concomitant]
     Dates: start: 20110914, end: 20111012
  16. BECLOMETHASONE DIPROPIONATE [Concomitant]
     Dates: start: 20111027

REACTIONS (3)
  - HYPERHIDROSIS [None]
  - DRUG ERUPTION [None]
  - JOINT SWELLING [None]
